FAERS Safety Report 7942936-0 (Version None)
Quarter: 2011Q4

REPORT INFORMATION
  Report Type: 
  Country: None (occurrence: None)
  Receive Date: 20111128
  Receipt Date: 20111118
  Transmission Date: 20120403
  Serious: Yes (Hospitalization, Other)
  Sender: FDA-Public Use
  Company Number: JP-MERCK-1110USA03619

PATIENT
  Age: 46 Year
  Sex: Female

DRUGS (6)
  1. HUSCODE [Concomitant]
     Indication: ASTHMA
     Route: 065
  2. CELECOXIB [Suspect]
     Indication: BACK PAIN
     Route: 048
     Dates: start: 20101208, end: 20101220
  3. CYSTEINE [Concomitant]
     Indication: ASTHMA
     Route: 065
  4. MEPTIN AIR [Concomitant]
     Indication: ASTHMA
     Route: 055
  5. RINLAXER [Concomitant]
     Indication: BACK PAIN
     Route: 065
     Dates: start: 20101208, end: 20101220
  6. PEPCID RPD [Suspect]
     Indication: BACK PAIN
     Route: 048
     Dates: start: 20101208, end: 20101220

REACTIONS (1)
  - STEVENS-JOHNSON SYNDROME [None]
